FAERS Safety Report 21232642 (Version 1)
Quarter: 2022Q3

REPORT INFORMATION
  Report Type: 
  Country: None (occurrence: None)
  Receive Date: 20220819
  Receipt Date: 20220819
  Transmission Date: 20221027
  Serious: No
  Sender: FDA-Public Use
  Company Number: None

PATIENT
  Age: 64 Year
  Sex: Female

DRUGS (1)
  1. TIMOLOL MALEATE [Suspect]
     Active Substance: TIMOLOL MALEATE

REACTIONS (2)
  - Eyelids pruritus [Recovered/Resolved]
  - Drug intolerance [Recovered/Resolved]
